FAERS Safety Report 6384422-8 (Version None)
Quarter: 2009Q3

REPORT INFORMATION
  Report Type: 
  Country: None (occurrence: None)
  Receive Date: 20090929
  Receipt Date: 20090917
  Transmission Date: 20100115
  Serious: Yes (Hospitalization, Other)
  Sender: FDA-Public Use
  Company Number: 2009AL005782

PATIENT
  Age: 75 Year
  Sex: Male

DRUGS (11)
  1. METFORMIN HYDROCHLORIDE [Suspect]
     Indication: DIABETES MELLITUS
     Dosage: 500 MG; BID; PO
     Route: 048
     Dates: start: 20060101
  2. RAMIPRIL [Suspect]
     Indication: CARDIAC FAILURE
     Dosage: 5 MG; BID; PO
     Route: 048
     Dates: start: 20060101
  3. SPIRONOLACTONE [Suspect]
     Dosage: PO
     Route: 048
  4. AMIODARONE [Concomitant]
  5. OMEPRAZOLE [Concomitant]
  6. CARDENSIEL [Concomitant]
  7. LEVOTHYROXINE SODIUM [Concomitant]
  8. ROVAMYCINE [Concomitant]
  9. LASILIX [Concomitant]
  10. PREVISCAN [Concomitant]
  11. LANTUS [Concomitant]

REACTIONS (3)
  - LUNG DISORDER [None]
  - PURPURA [None]
  - VASCULITIS [None]
